FAERS Safety Report 7340609-9 (Version None)
Quarter: 2011Q1

REPORT INFORMATION
  Report Type: 
  Country: None (occurrence: None)
  Receive Date: 20110218
  Receipt Date: 20101101
  Transmission Date: 20110831
  Serious: Yes (Other)
  Sender: FDA-Public Use
  Company Number: 20101013CINRY1650

PATIENT
  Age: 32 Year
  Sex: Male

DRUGS (3)
  1. DANAZOL [Concomitant]
  2. CINRYZE [Suspect]
     Indication: HEREDITARY ANGIOEDEMA
     Dosage: (1000 UNIT, AS REQUIRED)
     Dates: start: 20090801
  3. AUGMENTIN (AUGMENTIN /00756801/) [Concomitant]

REACTIONS (6)
  - OFF LABEL USE [None]
  - HEREDITARY ANGIOEDEMA [None]
  - ANGIOEDEMA [None]
  - SINUSITIS [None]
  - INAPPROPRIATE SCHEDULE OF DRUG ADMINISTRATION [None]
  - BRONCHITIS [None]
